FAERS Safety Report 15389420 (Version 1)
Quarter: 2018Q3

REPORT INFORMATION
  Report Type: Spontaneous
  Country: US (occurrence: US)
  Receive Date: 20180917
  Receipt Date: 20180917
  Transmission Date: 20181010
  Serious: No
  Sender: FDA-Public Use
  Company Number: US-SHIRE-US201835731

PATIENT
  Sex: Female

DRUGS (1)
  1. FIRAZYR [Suspect]
     Active Substance: ICATIBANT ACETATE
     Indication: PRODUCT USED FOR UNKNOWN INDICATION
     Dosage: 30 ML, AS REQ^D
     Route: 058
     Dates: start: 20180912

REACTIONS (6)
  - Injection site pruritus [Recovering/Resolving]
  - Fatigue [Recovering/Resolving]
  - Injection site swelling [Recovering/Resolving]
  - Headache [Not Recovered/Not Resolved]
  - Somnolence [Recovering/Resolving]
  - Injection site erythema [Recovering/Resolving]
